FAERS Safety Report 25413701 (Version 1)
Quarter: 2025Q2

REPORT INFORMATION
  Report Type: Spontaneous
  Country: ES (occurrence: ES)
  Receive Date: 20250609
  Receipt Date: 20250609
  Transmission Date: 20250717
  Serious: Yes (Life-Threatening, Hospitalization)
  Sender: FERRING
  Company Number: ES-FERRINGPH-ES-012381

PATIENT

DRUGS (4)
  1. DESMOPRESSIN [Interacting]
     Active Substance: DESMOPRESSIN
     Indication: Diabetes insipidus
     Dosage: 10 UG, DAILY IN TWO DIVIDED DOSES
     Route: 045
     Dates: start: 1995
  2. ACECLOFENAC [Interacting]
     Active Substance: ACECLOFENAC
     Indication: Back pain
     Dosage: 200 MG, DAILY
     Route: 048
     Dates: start: 2013, end: 2013
  3. CYPROTERONE ACETATE [Suspect]
     Active Substance: CYPROTERONE ACETATE
     Indication: Feminisation acquired
     Dosage: 50 MG, 2 TIMES DAILY
     Route: 065
  4. ESTRADIOL [Suspect]
     Active Substance: ESTRADIOL
     Indication: Feminisation acquired
     Dosage: 100 UG, DAILY
     Route: 062

REACTIONS (13)
  - Hyponatraemia [Recovered/Resolved]
  - Depressed level of consciousness [Recovered/Resolved]
  - Dizziness [Recovered/Resolved]
  - Headache [Recovered/Resolved]
  - Lethargy [Recovered/Resolved]
  - Nausea [Recovered/Resolved]
  - Vomiting [Recovered/Resolved]
  - Drug interaction [Recovered/Resolved]
  - Meningioma [Recovered/Resolved]
  - Visual impairment [Recovering/Resolving]
  - Optic atrophy [Unknown]
  - Depressed level of consciousness [Recovered/Resolved]
  - Medication error [Unknown]

NARRATIVE: CASE EVENT DATE: 20130101
